FAERS Safety Report 6682660-8 (Version None)
Quarter: 2010Q2

REPORT INFORMATION
  Report Type: 
  Country: None (occurrence: None)
  Receive Date: 20100415
  Receipt Date: 20100412
  Transmission Date: 20101027
  Serious: Yes (Other)
  Sender: FDA-Public Use
  Company Number: US-BRISTOL-MYERS SQUIBB COMPANY-15059637

PATIENT
  Age: 80 Year
  Sex: Female
  Weight: 59 kg

DRUGS (6)
  1. CISPLATIN [Suspect]
     Indication: TRANSITIONAL CELL CARCINOMA
     Dosage: RECENT INFUSION ON 10MAR2010; DURATION: 28 DAYS
     Route: 042
     Dates: start: 20100210, end: 20100310
  2. GEMCITABINE HCL [Suspect]
     Indication: TRANSITIONAL CELL CARCINOMA
     Dosage: RECENT INFUSION ON 17MAR2010, DOSE REDUCED TO 75% OF THE PRIOR DOSE.
     Route: 042
     Dates: start: 20100210, end: 20100317
  3. CADUET [Concomitant]
     Indication: HYPERTENSION
     Route: 065
  4. CADUET [Concomitant]
     Indication: DYSLIPIDAEMIA
     Route: 065
  5. DETROL LA [Concomitant]
     Route: 065
  6. ASPIRIN [Concomitant]
     Route: 065

REACTIONS (1)
  - DEEP VEIN THROMBOSIS [None]
